FAERS Safety Report 4446527-8 (Version None)
Quarter: 2004Q3

REPORT INFORMATION
  Report Type: 
  Country: None (occurrence: None)
  Receive Date: 20040908
  Receipt Date: 20040820
  Transmission Date: 20050211
  Serious: Yes (Other)
  Sender: FDA-Public Use
  Company Number: 2004229678DE

PATIENT
  Age: 55 Year
  Sex: Male
  Weight: 115 kg

DRUGS (1)
  1. GENOTROPIN [Suspect]
     Indication: HYPOPITUITARISM
     Dosage: 0.4 MG, QD
     Dates: start: 20000822, end: 20030207

REACTIONS (2)
  - NEOPLASM RECURRENCE [None]
  - NON-SECRETORY ADENOMA OF PITUITARY [None]
